FAERS Safety Report 7233489-3 (Version None)
Quarter: 2011Q1

REPORT INFORMATION
  Report Type: 
  Country: None (occurrence: None)
  Receive Date: 20110119
  Receipt Date: 20110106
  Transmission Date: 20110831
  Serious: Yes (Hospitalization, Other)
  Sender: FDA-Public Use
  Company Number: JP-ELI_LILLY_AND_COMPANY-JP201101002256

PATIENT

DRUGS (2)
  1. ZYPREXA [Suspect]
     Route: 048
  2. SEROQUEL [Concomitant]
     Route: 048

REACTIONS (4)
  - HYPERKALAEMIA [None]
  - PNEUMONIA [None]
  - HYPOGLYCAEMIA [None]
  - BLOOD INSULIN INCREASED [None]
